FAERS Safety Report 4963334-8 (Version None)
Quarter: 2006Q2

REPORT INFORMATION
  Report Type: 
  Country: None (occurrence: None)
  Receive Date: 20060405
  Receipt Date: 20060127
  Transmission Date: 20061013
  Serious: Yes (Other)
  Sender: FDA-Public Use
  Company Number: PHBS2006JP01635

PATIENT
  Age: 3 Year
  Sex: Male

DRUGS (1)
  1. TEGRETOL [Suspect]
     Indication: EPILEPSY
     Dosage: 250 MG/DAY
     Route: 048
     Dates: start: 20051201

REACTIONS (2)
  - CYANOSIS [None]
  - SLEEP APNOEA SYNDROME [None]
